FAERS Safety Report 5445047-1 (Version None)
Quarter: 2007Q3

REPORT INFORMATION
  Report Type: 
  Country: None (occurrence: None)
  Receive Date: 20070906
  Receipt Date: 20070828
  Transmission Date: 20080115
  Serious: Yes (Disabling, Other)
  Sender: FDA-Public Use
  Company Number: US-PURDUE-USA_2007_0027192

PATIENT
  Sex: Male

DRUGS (1)
  1. OXYCONTIN [Suspect]
     Indication: PAIN
     Dosage: 40 MG, BID

REACTIONS (9)
  - BURNING SENSATION [None]
  - DRUG EFFECT DECREASED [None]
  - HYPOAESTHESIA [None]
  - HYPOKINESIA [None]
  - NERVE INJURY [None]
  - SENSORY LOSS [None]
  - SUBSTANCE ABUSE [None]
  - THERAPEUTIC RESPONSE DECREASED [None]
  - WRONG TECHNIQUE IN DRUG USAGE PROCESS [None]
